FAERS Safety Report 5950909-2 (Version None)
Quarter: 2008Q4

REPORT INFORMATION
  Report Type: 
  Country: None (occurrence: None)
  Receive Date: 20081112
  Receipt Date: 20081103
  Transmission Date: 20090506
  Serious: Yes (Death, Hospitalization, Other)
  Sender: FDA-Public Use
  Company Number: US-PFIZER INC-2008083595

PATIENT
  Sex: Male
  Weight: 78 kg

DRUGS (18)
  1. IRINOTECAN HCL [Suspect]
     Indication: SMALL CELL LUNG CANCER STAGE UNSPECIFIED
     Route: 042
     Dates: start: 20080908, end: 20080915
  2. SU-011,248 [Suspect]
     Indication: SMALL CELL LUNG CANCER STAGE UNSPECIFIED
     Route: 048
     Dates: start: 20080908, end: 20081002
  3. CARBOPLATIN [Suspect]
     Indication: SMALL CELL LUNG CANCER STAGE UNSPECIFIED
     Dosage: TEXT:AUC 4 (522 MG)-FREQ:DAY 1
     Route: 042
     Dates: start: 20080908, end: 20080908
  4. COMPAZINE [Concomitant]
     Indication: NAUSEA
     Route: 048
     Dates: start: 20080908
  5. PAXIL [Concomitant]
     Route: 048
  6. MUCINEX [Concomitant]
     Route: 048
     Dates: start: 20080815
  7. KLONOPIN [Concomitant]
     Indication: ANXIETY
     Route: 048
  8. DARVOCET [Concomitant]
     Indication: PAIN
     Route: 048
  9. PROMETHAZINE [Concomitant]
     Indication: NAUSEA
     Route: 048
  10. METOPROLOL TARTRATE [Concomitant]
     Indication: HYPERTENSION
     Route: 048
  11. LISINOPRIL [Concomitant]
     Indication: HYPERTENSION
     Route: 048
  12. LASIX [Concomitant]
     Indication: HYPERTENSION
     Route: 048
  13. AMBIEN [Concomitant]
     Indication: INSOMNIA
     Dosage: TEXT:5MG-10MG
     Route: 048
  14. ERYTHROMYCIN [Concomitant]
     Indication: PNEUMONIA
     Route: 048
     Dates: start: 20080814, end: 20080828
  15. XANAX [Concomitant]
     Indication: ANXIETY
     Route: 048
     Dates: start: 20080908
  16. METRONIDAZOLE [Concomitant]
     Indication: COLITIS
     Route: 048
     Dates: start: 20080925
  17. LEVAQUIN [Concomitant]
     Indication: INFECTION
     Route: 042
     Dates: start: 20080922, end: 20080926
  18. DEMECLOCYCLINE HCL [Concomitant]
     Indication: INAPPROPRIATE ANTIDIURETIC HORMONE SECRETION
     Route: 048
     Dates: start: 20080924, end: 20080926

REACTIONS (5)
  - CARDIAC FAILURE CONGESTIVE [None]
  - HYPONATRAEMIA [None]
  - LEUKOPENIA [None]
  - NEUTROPENIC SEPSIS [None]
  - THROMBOCYTOPENIA [None]
